FAERS Safety Report 16335732 (Version 1)
Quarter: 2019Q2

REPORT INFORMATION
  Report Type: Other
  Country: FR (occurrence: FR)
  Receive Date: 20190521
  Receipt Date: 20190521
  Transmission Date: 20190711
  Serious: Yes (Hospitalization)
  Sender: FDA-Public Use
  Company Number: FR-CELLTRION INC.-2019FR021226

PATIENT

DRUGS (13)
  1. SPIRIVA [Concomitant]
     Active Substance: TIOTROPIUM BROMIDE MONOHYDRATE
     Dosage: UNK
  2. ADENURIC [Concomitant]
     Active Substance: FEBUXOSTAT
     Dosage: UNK
  3. SEEBRI BREEZHALER [Concomitant]
     Active Substance: GLYCOPYRROLATE
     Dosage: UNK
  4. PANTOPRAZOLE [Concomitant]
     Active Substance: PANTOPRAZOLE
     Dosage: UNK
  5. ZELITREX [Concomitant]
     Active Substance: VALACYCLOVIR HYDROCHLORIDE
     Dosage: UNK
     Dates: start: 20190220
  6. DARZALEX [Suspect]
     Active Substance: DARATUMUMAB
     Indication: THROMBOTIC THROMBOCYTOPENIC PURPURA
     Dosage: 1425 MG
     Route: 041
     Dates: start: 20190415, end: 20190415
  7. ATORVASTATINE [ATORVASTATIN] [Concomitant]
     Active Substance: ATORVASTATIN
     Dosage: UNK
  8. ABASAGLAR [Concomitant]
     Active Substance: INSULIN GLARGINE
     Dosage: UNK
  9. CORTANCYL [Concomitant]
     Active Substance: PREDNISONE
     Dosage: UNK
  10. TRUXIMA [Suspect]
     Active Substance: RITUXIMAB-ABBS
     Indication: THROMBOTIC THROMBOCYTOPENIC PURPURA
     Dosage: 760 MG
     Route: 041
     Dates: start: 20181114, end: 20190404
  11. LASILIX [FUROSEMIDE] [Suspect]
     Active Substance: FUROSEMIDE
     Indication: ACUTE PULMONARY OEDEMA
     Dosage: 1 DF, QD
     Route: 048
     Dates: start: 20190406, end: 20190415
  12. NOVORAPID [Concomitant]
     Active Substance: INSULIN ASPART
  13. GALVUS [Concomitant]
     Active Substance: VILDAGLIPTIN
     Dosage: UNK

REACTIONS (2)
  - Agranulocytosis [Recovered/Resolved]
  - Product use in unapproved indication [Unknown]

NARRATIVE: CASE EVENT DATE: 20190415
